FAERS Safety Report 15812385 (Version 1)
Quarter: 2019Q1

REPORT INFORMATION
  Report Type: Spontaneous
  Country: US (occurrence: US)
  Receive Date: 20190111
  Receipt Date: 20190111
  Transmission Date: 20190417
  Serious: No
  Sender: FDA-Public Use
  Company Number: None

PATIENT

DRUGS (2)
  1. DEXMETHYLPHENIDATE HCL [Suspect]
     Active Substance: DEXMETHYLPHENIDATE HYDROCHLORIDE
  2. DEXTROAMPHETAMINE SULFATE. [Suspect]
     Active Substance: DEXTROAMPHETAMINE SULFATE

REACTIONS (2)
  - Product name confusion [None]
  - Product dispensing error [None]
